FAERS Safety Report 7979632-X (Version None)
Quarter: 2011Q4

REPORT INFORMATION
  Report Type: 
  Country: None (occurrence: None)
  Receive Date: 20111213
  Receipt Date: 20111213
  Transmission Date: 20120403
  Serious: Yes (Other)
  Sender: FDA-Public Use
  Company Number: None

PATIENT
  Age: 63 Year
  Sex: Male
  Weight: 58.3 kg

DRUGS (1)
  1. CETUXIMAB [Suspect]
     Indication: LIP AND/OR ORAL CAVITY CANCER
     Dosage: 100 MG ONCE IV
     Route: 042
     Dates: start: 20111013, end: 20111013

REACTIONS (3)
  - ANAPHYLACTIC REACTION [None]
  - HYPERTENSION [None]
  - HYPOTENSION [None]
